FAERS Safety Report 5968921-6 (Version None)
Quarter: 2008Q4

REPORT INFORMATION
  Report Type: 
  Country: None (occurrence: None)
  Receive Date: 20081125
  Receipt Date: 20081125
  Transmission Date: 20090506
  Serious: Yes (Life-Threatening)
  Sender: FDA-Public Use
  Company Number: None

PATIENT
  Age: 62 Year
  Sex: Female
  Weight: 54 kg

DRUGS (2)
  1. CETUXIMAB [Suspect]
     Indication: COLON CANCER METASTATIC
     Dosage: 600MG IV DRIP
     Route: 041
     Dates: start: 20080404, end: 20080404
  2. ERBITUX [Suspect]
     Indication: COLON CANCER METASTATIC
     Dosage: 600MG 30 ML/HR IV DRIP
     Route: 041
     Dates: start: 20080404, end: 20080404

REACTIONS (7)
  - CHEST DISCOMFORT [None]
  - DYSPHAGIA [None]
  - HEART RATE INCREASED [None]
  - HYPOTENSION [None]
  - INFUSION RELATED REACTION [None]
  - NAUSEA [None]
  - VOMITING [None]
